FAERS Safety Report 25360804 (Version 1)
Quarter: 2025Q2

REPORT INFORMATION
  Report Type: Spontaneous
  Country: GB (occurrence: GB)
  Receive Date: 20250527
  Receipt Date: 20250527
  Transmission Date: 20250717
  Serious: Yes (Disabling, Other)
  Sender: TEVA
  Company Number: GB-BAYER-2025A069795

PATIENT
  Age: 75 Year
  Sex: Male

DRUGS (2)
  1. CLOTRIMAZOLE [Suspect]
     Active Substance: CLOTRIMAZOLE
     Indication: Product used for unknown indication
     Route: 065
  2. TOLNAFTATE [Suspect]
     Active Substance: TOLNAFTATE
     Indication: Product used for unknown indication
     Route: 065

REACTIONS (6)
  - Mesothelioma [Unknown]
  - Deformity [Unknown]
  - Disability [Unknown]
  - Physical disability [Unknown]
  - Anxiety [Unknown]
  - Exposure to chemical pollution [Unknown]
